FAERS Safety Report 7827529-8 (Version None)
Quarter: 2011Q4

REPORT INFORMATION
  Report Type: 
  Country: None (occurrence: None)
  Receive Date: 20111020
  Receipt Date: 20111005
  Transmission Date: 20120403
  Serious: Yes (Death)
  Sender: FDA-Public Use
  Company Number: ES-ROCHE-749341

PATIENT
  Sex: Female

DRUGS (3)
  1. IRINOTECAN HCL [Suspect]
     Indication: COLORECTAL CANCER
     Dosage: DOSAGE FORM: INFUSION. LAST DOSE PRIOR TO SAE: 29 NOVEMBER 2010.
     Route: 042
     Dates: start: 20100830, end: 20101208
  2. AVASTIN [Suspect]
     Indication: COLORECTAL CANCER
     Dosage: DOSAGE FORM: INFUSION.  LAST DOSE PRIOR TO SAE 22 NOVEMBER 2010.
     Route: 042
     Dates: start: 20100830, end: 20101208
  3. FLUOROURACIL [Suspect]
     Indication: COLORECTAL CANCER
     Dosage: DOSAGE FORM: INFUSION. LAST DOSE PRIOR TO SAE: 29 NOVEMBER 2010.
     Route: 042
     Dates: start: 20100830, end: 20101208

REACTIONS (1)
  - PULMONARY EMBOLISM [None]
